FAERS Safety Report 4889326-5 (Version None)
Quarter: 2006Q1

REPORT INFORMATION
  Report Type: 
  Country: None (occurrence: None)
  Receive Date: 20060120
  Receipt Date: 20060120
  Transmission Date: 20060701
  Serious: Yes (Hospitalization)
  Sender: FDA-Public Use
  Company Number: None

PATIENT
  Sex: Male

DRUGS (13)
  1. SERTRALINE [Suspect]
     Indication: DYSTHYMIC DISORDER
     Dosage: 100 MG  DAILY  PO
     Route: 048
     Dates: start: 20050502, end: 20061005
  2. ATORVASTATIN CALCIUM [Concomitant]
  3. CARBAMAZEPINE [Concomitant]
  4. CLONAZEPAM [Concomitant]
  5. FENTANYL [Concomitant]
  6. FLUNISOLIDE [Concomitant]
  7. GAVISCON [Concomitant]
  8. LANSOPRAZOLE [Concomitant]
  9. LISINOPRIL [Concomitant]
  10. MULTI-VITAMIN [Concomitant]
  11. OLANZAPINE [Concomitant]
  12. OXYCODONE AND ACETAMINOPHEN [Concomitant]
  13. TRAZODONE [Concomitant]

REACTIONS (2)
  - HYPONATRAEMIA [None]
  - MENTAL STATUS CHANGES [None]
